FAERS Safety Report 12213885 (Version 1)
Quarter: 2016Q1

REPORT INFORMATION
  Report Type: Spontaneous
  Country: US (occurrence: None)
  Receive Date: 20160325
  Receipt Date: 20160325
  Transmission Date: 20160526
  Serious: Yes (Hospitalization)
  Sender: FDA-Public Use
  Company Number: None

PATIENT
  Age: 65 Year
  Sex: Male
  Weight: 87.7 kg

DRUGS (2)
  1. LISINOPRIL. [Suspect]
     Active Substance: LISINOPRIL
     Indication: HYPERTENSION
     Route: 048
     Dates: start: 20141001, end: 20150403
  2. DICLOFENAC [Suspect]
     Active Substance: DICLOFENAC
     Indication: PAIN
     Route: 048
     Dates: start: 20150323, end: 20150402

REACTIONS (2)
  - Rash [None]
  - Angioedema [None]

NARRATIVE: CASE EVENT DATE: 20150402
